FAERS Safety Report 9519768 (Version 1)
Quarter: 2013Q3

REPORT INFORMATION
  Report Type: Spontaneous
  Country: US (occurrence: None)
  Receive Date: 20130911
  Receipt Date: 20130911
  Transmission Date: 20140515
  Serious: Yes (Other)
  Sender: FDA-Public Use
  Company Number: None

PATIENT
  Age: 29 Year
  Sex: Female
  Weight: 54.43 kg

DRUGS (1)
  1. INTROVALE [Suspect]
     Indication: ORAL CONTRACEPTION
     Route: 048
     Dates: start: 20130828, end: 20130910

REACTIONS (2)
  - Metrorrhagia [None]
  - Product substitution issue [None]
